FAERS Safety Report 10266215 (Version 1)
Quarter: 2014Q2

REPORT INFORMATION
  Report Type: Spontaneous
  Country: US (occurrence: US)
  Receive Date: 20140627
  Receipt Date: 20140627
  Transmission Date: 20141212
  Serious: No
  Sender: FDA-Public Use
  Company Number: US-ASTRAZENECA-2013SE90239

PATIENT
  Age: 45 Year
  Sex: Female
  Weight: 75.3 kg

DRUGS (9)
  1. UNSPECIFIED METOPROLOL ER [Suspect]
     Indication: CARDIAC DISORDER
     Route: 048
  2. SEROQUEL XR [Suspect]
     Indication: BIPOLAR DISORDER
     Route: 048
     Dates: start: 201310
  3. SEROQUEL XR [Suspect]
     Indication: AFFECTIVE DISORDER
     Route: 048
     Dates: start: 201310
  4. SEROQUEL XR [Suspect]
     Indication: MOOD SWINGS
     Route: 048
     Dates: start: 201310
  5. SEROQUEL XR [Suspect]
     Indication: AGITATION
     Route: 048
     Dates: start: 201310
  6. SEROQUEL XR [Suspect]
     Indication: BIPOLAR DISORDER
     Route: 048
  7. SEROQUEL XR [Suspect]
     Indication: AFFECTIVE DISORDER
     Route: 048
  8. SEROQUEL XR [Suspect]
     Indication: MOOD SWINGS
     Route: 048
  9. SEROQUEL XR [Suspect]
     Indication: AGITATION
     Route: 048

REACTIONS (10)
  - Diabetes mellitus [Unknown]
  - Hypothyroidism [Not Recovered/Not Resolved]
  - Bipolar disorder [Not Recovered/Not Resolved]
  - Affective disorder [Not Recovered/Not Resolved]
  - Mood swings [Not Recovered/Not Resolved]
  - Insomnia [Not Recovered/Not Resolved]
  - Depression [Not Recovered/Not Resolved]
  - Agitation [Not Recovered/Not Resolved]
  - Somnolence [Unknown]
  - Off label use [Not Recovered/Not Resolved]
